FAERS Safety Report 11125040 (Version 2)
Quarter: 2015Q3

REPORT INFORMATION
  Report Type: Spontaneous
  Country: HU (occurrence: HU)
  Receive Date: 20150520
  Receipt Date: 20150708
  Transmission Date: 20151125
  Serious: Yes (Hospitalization, Other)
  Sender: FDA-Public Use
  Company Number: HU-TEVA-562625ISR

PATIENT
  Age: 42 Year
  Sex: Female

DRUGS (5)
  1. LEFLUNOMIDE. [Suspect]
     Active Substance: LEFLUNOMIDE
     Indication: ARTHRALGIA
     Dates: start: 201302
  2. METHOTREXATE [Suspect]
     Active Substance: METHOTREXATE
     Indication: PAIN IN EXTREMITY
  3. LEVOFLOXACIN. [Suspect]
     Active Substance: LEVOFLOXACIN
     Indication: IDIOPATHIC PULMONARY FIBROSIS
     Route: 048
     Dates: start: 201410
  4. METHOTREXATE [Suspect]
     Active Substance: METHOTREXATE
     Indication: ARTHRALGIA
  5. LEFLUNOMIDE. [Suspect]
     Active Substance: LEFLUNOMIDE
     Indication: PAIN IN EXTREMITY

REACTIONS (5)
  - Drug ineffective [Unknown]
  - Leiomyoma [Unknown]
  - Idiopathic pulmonary fibrosis [Unknown]
  - Pulmonary fibrosis [Unknown]
  - Overlap syndrome [Unknown]

NARRATIVE: CASE EVENT DATE: 201410
